FAERS Safety Report 8960349 (Version 2)
Quarter: 2012Q4

REPORT INFORMATION
  Report Type: 
  Country: JP (occurrence: JP)
  Receive Date: 20121211
  Receipt Date: 20121228
  Transmission Date: 20130627
  Serious: Yes (Other)
  Sender: FDA-Public Use
  Company Number: JP-EISAI INC-E2020-11724-SPO-JP

PATIENT
  Age: 76 Year
  Sex: Male

DRUGS (8)
  1. ARICEPT [Suspect]
     Indication: DEMENTIA WITH LEWY BODIES
     Route: 048
     Dates: start: 20120801, end: 20121019
  2. REFLEX [Suspect]
     Indication: DRUG USE FOR UNKNOWN INDICATION
     Route: 048
  3. CYMBALTA [Concomitant]
     Route: 048
  4. THYRADIN S [Concomitant]
     Route: 048
  5. PLETAAL [Concomitant]
     Route: 048
  6. PARIET [Concomitant]
     Route: 048
  7. FOLIAMIN [Concomitant]
     Dosage: 33 (units not specified)
     Route: 048
  8. AMARYL [Concomitant]
     Route: 048

REACTIONS (1)
  - Rhabdomyolysis [Recovered/Resolved]
